FAERS Safety Report 23789773 (Version 2)
Quarter: 2025Q3

REPORT INFORMATION
  Report Type: Spontaneous
  Country: EU (occurrence: EU)
  Receive Date: 20240426
  Receipt Date: 20250915
  Transmission Date: 20251020
  Serious: Yes (Hospitalization)
  Sender: SUNOVION
  Company Number: EU-MINISAL02-953084

PATIENT
  Age: 58 Year
  Sex: Female

DRUGS (1)
  1. ESLICARBAZEPINE ACETATE [Suspect]
     Active Substance: ESLICARBAZEPINE ACETATE
     Indication: Epilepsy
     Dosage: 800 MILLIGRAM, DAILY
     Route: 048
     Dates: start: 20220801, end: 20231102

REACTIONS (2)
  - Agitation [Recovering/Resolving]
  - Hyponatraemia [Recovering/Resolving]

NARRATIVE: CASE EVENT DATE: 20231102
